FAERS Safety Report 24078984 (Version 1)
Quarter: 2024Q3

REPORT INFORMATION
  Report Type: Spontaneous
  Country: RU (occurrence: RU)
  Receive Date: 20240711
  Receipt Date: 20240711
  Transmission Date: 20241016
  Serious: Yes (Other)
  Sender: SANOFI AVENTIS
  Company Number: RU-SA-SAC20240704000575

PATIENT
  Age: 43 Year
  Sex: Male
  Weight: 86 kg

DRUGS (2)
  1. ARAVA [Suspect]
     Active Substance: LEFLUNOMIDE
     Indication: Psoriasis
     Dosage: 20 MG, QD
     Route: 048
     Dates: start: 20221118, end: 20240601
  2. METHOTREXATE [Concomitant]
     Active Substance: METHOTREXATE
     Indication: Psoriasis
     Dosage: 20 MG
     Route: 030
     Dates: start: 2020

REACTIONS (1)
  - Rash [Recovered/Resolved]

NARRATIVE: CASE EVENT DATE: 20230115
